FAERS Safety Report 11773229 (Version 1)
Quarter: 2015Q4

REPORT INFORMATION
  Report Type: Spontaneous
  Country: US (occurrence: US)
  Receive Date: 20151124
  Receipt Date: 20151124
  Transmission Date: 20160304
  Serious: No
  Sender: FDA-Public Use
  Company Number: US-TARO-2015TAR00121

PATIENT
  Sex: Male

DRUGS (2)
  1. CARBAMAZEPINE TABLETS CHEWABLE USP 100MG [Suspect]
     Active Substance: CARBAMAZEPINE
     Dosage: 2 TABLETS, 2X/DAY
  2. CARBAMAZEPINE TABLETS CHEWABLE USP 100MG [Suspect]
     Active Substance: CARBAMAZEPINE
     Dosage: 1 TABLETS, 1X/DAY
     Route: 048

REACTIONS (4)
  - Mental status changes [Unknown]
  - Anticonvulsant drug level increased [Unknown]
  - Incorrect dose administered [Unknown]
  - Lethargy [Unknown]
